FAERS Safety Report 6400836-1 (Version None)
Quarter: 2009Q4

REPORT INFORMATION
  Report Type: 
  Country: None (occurrence: None)
  Receive Date: 20091009
  Receipt Date: 20080825
  Transmission Date: 20100525
  Serious: Yes (Hospitalization)
  Sender: FDA-Public Use
  Company Number: 2008SP017987

PATIENT
  Age: 52 Year
  Sex: Male

DRUGS (11)
  1. TEMOZOLOMIDE [Suspect]
     Indication: DRUG USE FOR UNKNOWN INDICATION
     Dosage: ;PO
     Route: 048
  2. EZETIMIBE [Suspect]
     Indication: DRUG USE FOR UNKNOWN INDICATION
     Dosage: ;PO
     Route: 048
  3. SIMVASTATIN [Suspect]
     Indication: DRUG USE FOR UNKNOWN INDICATION
     Dosage: ;PO
     Route: 048
  4. HYDROXYZINE [Suspect]
     Indication: DRUG USE FOR UNKNOWN INDICATION
     Dosage: ;PO
     Route: 048
  5. CARVEDILOL [Suspect]
     Indication: DRUG USE FOR UNKNOWN INDICATION
  6. LANSOPRAZOLE [Suspect]
     Indication: DRUG USE FOR UNKNOWN INDICATION
  7. LEVOTHYROXINE SODIUM [Suspect]
     Indication: DRUG USE FOR UNKNOWN INDICATION
  8. OXYCODONE HCL AND ACETAMINOPHEN [Suspect]
     Indication: DRUG USE FOR UNKNOWN INDICATION
  9. CLOTRIMAZOLE [Suspect]
     Indication: DRUG USE FOR UNKNOWN INDICATION
  10. LEVETIRACETAM [Suspect]
     Indication: DRUG USE FOR UNKNOWN INDICATION
  11. ONDANSETRON HYDROCHLORIDE [Suspect]
     Indication: DRUG USE FOR UNKNOWN INDICATION

REACTIONS (4)
  - ABDOMINAL PAIN [None]
  - HYPERSENSITIVITY [None]
  - RASH ERYTHEMATOUS [None]
  - RASH PRURITIC [None]
